FAERS Safety Report 7065518-4 (Version None)
Quarter: 2010Q4

REPORT INFORMATION
  Report Type: 
  Country: None (occurrence: None)
  Receive Date: 20101027
  Receipt Date: 20101013
  Transmission Date: 20110411
  Serious: Yes (Death, Hospitalization, Other)
  Sender: FDA-Public Use
  Company Number: BR-MEDIMMUNE-MEDI-0011634

PATIENT
  Sex: Female
  Weight: 2.6 kg

DRUGS (2)
  1. SYNAGIS [Suspect]
     Indication: CARDIAC DISORDER
     Route: 030
     Dates: start: 20100430
  2. SYNAGIS [Suspect]
     Indication: IMMUNODEFICIENCY

REACTIONS (13)
  - ASPIRATION [None]
  - CARDIAC ARREST [None]
  - CARDIAC DISORDER [None]
  - CARDIOVASCULAR INSUFFICIENCY [None]
  - CONGENITAL ANOMALY [None]
  - CONGENITAL CARDIOVASCULAR ANOMALY [None]
  - CORONARY ARTERY BYPASS [None]
  - IMMUNODEFICIENCY [None]
  - OESOPHAGEAL ATRESIA [None]
  - PLEURAL EFFUSION [None]
  - POOR WEIGHT GAIN NEONATAL [None]
  - PYREXIA [None]
  - VASCULAR ANOMALY [None]
